FAERS Safety Report 18591710 (Version 2)
Quarter: 2024Q3

REPORT INFORMATION
  Report Type: Spontaneous
  Country: US (occurrence: US)
  Receive Date: 20201208
  Receipt Date: 20240731
  Transmission Date: 20241017
  Serious: Yes (Other)
  Sender: PURDUE
  Company Number: US-PURDUE-USA-2020-0181893

PATIENT
  Sex: Male

DRUGS (10)
  1. OXYCONTIN [Suspect]
     Active Substance: OXYCODONE HYDROCHLORIDE
     Indication: Pain
     Dosage: UNK
     Route: 048
  2. OXYCODONE HYDROCHLORIDE [Suspect]
     Active Substance: OXYCODONE HYDROCHLORIDE
     Indication: Pain
     Dosage: 30 MG, TWICE
     Route: 048
  3. OXYCODONE HYDROCHLORIDE [Suspect]
     Active Substance: OXYCODONE HYDROCHLORIDE
     Indication: Product used for unknown indication
     Dosage: 8 DOSAGE FORM, DAILY
     Route: 065
  4. MORPHINE SULFATE [Suspect]
     Active Substance: MORPHINE SULFATE
     Indication: Pain
     Dosage: 100 MILLIGRAM, BID
     Route: 065
  5. MORPHINE SULFATE [Suspect]
     Active Substance: MORPHINE SULFATE
     Dosage: 100 MILLIGRAM, UNK
     Route: 048
  6. MORPHINE SULFATE [Suspect]
     Active Substance: MORPHINE SULFATE
     Indication: Pain
     Dosage: 100 MG, UNK
     Route: 048
  7. FENTANYL [Suspect]
     Active Substance: FENTANYL\FENTANYL CITRATE
     Indication: Pain
     Dosage: 100 MCG, UNK
     Route: 062
  8. FENTANYL [Suspect]
     Active Substance: FENTANYL\FENTANYL CITRATE
     Dosage: 125 MCG, Q48H
     Route: 065
  9. ROXICODONE [Suspect]
     Active Substance: OXYCODONE HYDROCHLORIDE
     Indication: Pain
     Dosage: 15 MG, UNK
     Route: 065
  10. SOMA [Suspect]
     Active Substance: CARISOPRODOL
     Indication: Product used for unknown indication
     Dosage: 450 MILLIGRAM, 3 OR 4X A DAY
     Route: 065

REACTIONS (26)
  - Pleural effusion [Unknown]
  - Leukocytosis [Unknown]
  - Pneumonia aspiration [Unknown]
  - Pneumonia necrotising [Unknown]
  - Pulmonary mass [Unknown]
  - Hypoxic-ischaemic encephalopathy [Unknown]
  - Acute respiratory failure [Recovered/Resolved]
  - Hypoxia [Unknown]
  - Overdose [Unknown]
  - Drug abuse [Unknown]
  - Obstructive sleep apnoea syndrome [Unknown]
  - Anaemia [Unknown]
  - Weight decreased [Unknown]
  - Productive cough [Unknown]
  - Constipation [Unknown]
  - Lethargy [Unknown]
  - Withdrawal syndrome [Unknown]
  - Tremor [Unknown]
  - Pruritus [Unknown]
  - Hypercapnia [Unknown]
  - PCO2 increased [Unknown]
  - Pain [Unknown]
  - Emotional distress [Unknown]
  - Stress [Unknown]
  - Frustration tolerance decreased [Unknown]
  - Product prescribing issue [Unknown]
